FAERS Safety Report 20594382 (Version 1)
Quarter: 2022Q1

REPORT INFORMATION
  Report Type: Spontaneous
  Country: US (occurrence: US)
  Receive Date: 20220315
  Receipt Date: 20220315
  Transmission Date: 20220423
  Serious: Yes (Other)
  Sender: FDA-Public Use
  Company Number: US-BIOVITRUM-2022US03551

PATIENT
  Age: 2 Year
  Sex: Female

DRUGS (2)
  1. ANAKINRA [Suspect]
     Active Substance: ANAKINRA
     Indication: COVID-19 pneumonia
     Route: 042
  2. ANAKINRA [Suspect]
     Active Substance: ANAKINRA
     Indication: Inflammation

REACTIONS (6)
  - Pulmonary hypertensive crisis [Unknown]
  - Pulmonary hypertension [Unknown]
  - Left ventricular dysfunction [Unknown]
  - C-reactive protein increased [Unknown]
  - Hyperferritinaemia [Recovered/Resolved]
  - Off label use [Unknown]
